FAERS Safety Report 4588828-9 (Version None)
Quarter: 2005Q1

REPORT INFORMATION
  Report Type: 
  Country: None (occurrence: None)
  Receive Date: 20050216
  Receipt Date: 20050203
  Transmission Date: 20050727
  Serious: Yes (Hospitalization, Other)
  Sender: FDA-Public Use
  Company Number: 2005025036

PATIENT
  Age: 75 Year
  Sex: Female
  Weight: 89.8122 kg

DRUGS (16)
  1. BEXTRA [Suspect]
     Indication: ARTHRITIS
     Dosage: 40 MG (20 MG, 2 IN 1 D), ORAL
     Route: 048
     Dates: start: 20030801, end: 20040724
  2. CLOPIDOGREL BISULFATE [Concomitant]
  3. SIMVASTATIN [Concomitant]
  4. METOCLOPRAMIDE [Concomitant]
  5. OMEPRAZOLE [Concomitant]
  6. DOCUSATE SODIUM (DOCUSATE SODIUM) [Concomitant]
  7. WARFARIN SODIUM [Concomitant]
  8. ROSUVASTATIN (ROSUVASTATIN) [Concomitant]
  9. CARVEDILOL [Concomitant]
  10. PIOGLITAZONE HCL [Concomitant]
  11. POTASSIUM (POTASSIUM) [Concomitant]
  12. IRON (IRON) [Concomitant]
  13. ACETYLSALICYLIC ACID SRT [Concomitant]
  14. SENNA FRUIT (SENNA FRUIT) [Concomitant]
  15. MACROGOL (MACROGOL) [Concomitant]
  16. SORBITOL (SORBITOL) [Concomitant]

REACTIONS (6)
  - DIABETES MELLITUS [None]
  - IMPLANT SITE INFECTION [None]
  - MYOCARDIAL INFARCTION [None]
  - RENAL FAILURE [None]
  - STAPHYLOCOCCAL INFECTION [None]
  - SURGICAL PROCEDURE REPEATED [None]
